FAERS Safety Report 23250212 (Version 1)
Quarter: 2023Q4

REPORT INFORMATION
  Report Type: Spontaneous
  Country: CA (occurrence: CA)
  Receive Date: 20231201
  Receipt Date: 20231201
  Transmission Date: 20240109
  Serious: Yes (Life-Threatening)
  Sender: FDA-Public Use
  Company Number: None

PATIENT
  Age: 73 Year
  Sex: Female
  Weight: 71 kg

DRUGS (1)
  1. PACLITAXEL [Suspect]
     Active Substance: PACLITAXEL
     Indication: Endometrial adenocarcinoma
     Dosage: DOSAGE: SOLUTION INTRAVENOUS, ROUTE: INTRAVENOUS DRIP
     Route: 042

REACTIONS (9)
  - Feeling abnormal [Recovered/Resolved]
  - Vitreous floaters [Recovered/Resolved]
  - Respiratory rate decreased [Recovered/Resolved]
  - Oxygen therapy [Recovered/Resolved]
  - Heart rate decreased [Recovered/Resolved]
  - Anaphylactic reaction [Recovered/Resolved]
  - Hyperhidrosis [Recovered/Resolved]
  - Incontinence [Recovered/Resolved]
  - Loss of consciousness [Recovered/Resolved]
